FAERS Safety Report 11012029 (Version 1)
Quarter: 2015Q2

REPORT INFORMATION
  Report Type: Spontaneous
  Country: FR (occurrence: FR)
  Receive Date: 20150410
  Receipt Date: 20150410
  Transmission Date: 20150821
  Serious: Yes (Hospitalization)
  Sender: FDA-Public Use
  Company Number: FR-SA-2015SA042781

PATIENT
  Sex: Female

DRUGS (2)
  1. THYROGEN [Suspect]
     Active Substance: THYROTROPIN ALFA
     Indication: DIAGNOSTIC PROCEDURE
     Route: 065
  2. SELENIUM [Concomitant]
     Active Substance: SELENIUM
     Indication: PROPHYLAXIS

REACTIONS (5)
  - Basedow^s disease [Unknown]
  - Fatigue [Unknown]
  - Somnolence [Unknown]
  - Papillary thyroid cancer [Unknown]
  - Visual impairment [Unknown]

NARRATIVE: CASE EVENT DATE: 20150401
